FAERS Safety Report 7993211-X (Version None)
Quarter: 2011Q4

REPORT INFORMATION
  Report Type: 
  Country: None (occurrence: None)
  Receive Date: 20111219
  Receipt Date: 20110506
  Transmission Date: 20120403
  Serious: No
  Sender: FDA-Public Use
  Company Number: US-ASTRAZENECA-2011SE27747

PATIENT
  Age: 56 Year
  Sex: Male

DRUGS (2)
  1. NIASPAN [Concomitant]
  2. CRESTOR [Suspect]
     Route: 048
     Dates: start: 20110101, end: 20110401

REACTIONS (3)
  - MUSCLE SPASMS [None]
  - PAIN [None]
  - MUSCLE TWITCHING [None]
